FAERS Safety Report 21861157 (Version 4)
Quarter: 2024Q4

REPORT INFORMATION
  Report Type: Spontaneous
  Country: US (occurrence: US)
  Receive Date: 20230113
  Receipt Date: 20241210
  Transmission Date: 20250115
  Serious: No
  Sender: PFIZER
  Company Number: US-PFIZER INC-PV202300006186

PATIENT
  Age: 63 Year
  Sex: Female

DRUGS (3)
  1. IBRANCE [Suspect]
     Active Substance: PALBOCICLIB
     Indication: Breast cancer female
     Dosage: 125 MG, CYCLIC, 1 TAB DAILY, TAKE ON DAY 1-21 OF 28 DAY CYCLE
     Route: 048
     Dates: start: 20180809
  2. LETROZOLE [Concomitant]
     Active Substance: LETROZOLE
     Indication: Breast cancer female
     Dosage: Q28D
     Dates: start: 20180809
  3. ATIVAN [Concomitant]
     Active Substance: LORAZEPAM
     Indication: Anxiety
     Dosage: 1-2 TABLETS P.O PRIOR TO MEDICAL PROCEDURES
     Route: 048

REACTIONS (1)
  - Neoplasm progression [Unknown]
